FAERS Safety Report 5250207-9 (Version None)
Quarter: 2007Q1

REPORT INFORMATION
  Report Type: 
  Country: None (occurrence: None)
  Receive Date: 20070228
  Receipt Date: 20060224
  Transmission Date: 20070707
  Serious: No
  Sender: FDA-Public Use
  Company Number: US-GLAXOSMITHKLINE-A0595111A

PATIENT
  Age: 51 Year
  Sex: Male

DRUGS (3)
  1. LAMICTAL [Suspect]
     Dosage: 25MG PER DAY
     Route: 048
     Dates: start: 20060215
  2. WELLBUTRIN [Concomitant]
     Route: 048
  3. SEROQUEL [Concomitant]

REACTIONS (3)
  - BALANCE DISORDER [None]
  - FEELING HOT [None]
  - HEADACHE [None]
